FAERS Safety Report 10065803 (Version 1)
Quarter: 2014Q2

REPORT INFORMATION
  Report Type: Spontaneous
  Country: US (occurrence: US)
  Receive Date: 20140408
  Receipt Date: 20140408
  Transmission Date: 20141212
  Serious: No
  Sender: FDA-Public Use
  Company Number: US-ASTELLAS-2014US001589

PATIENT
  Sex: Female
  Weight: 66 kg

DRUGS (1)
  1. MYRBETRIQ [Suspect]
     Indication: NOCTURIA
     Dosage: 25 MG, UID/QD
     Route: 048

REACTIONS (1)
  - Drug ineffective for unapproved indication [Unknown]
